FAERS Safety Report 26058458 (Version 1)
Quarter: 2025Q4

REPORT INFORMATION
  Report Type: Report from Study
  Country: CN (occurrence: CN)
  Receive Date: 20251118
  Receipt Date: 20251118
  Transmission Date: 20260118
  Serious: Yes (Other)
  Sender: RANBAXY
  Company Number: CN-SUN PHARMACEUTICAL INDUSTRIES INC-2025R1-536546

PATIENT

DRUGS (2)
  1. DEXAMETHASONE [Suspect]
     Active Substance: DEXAMETHASONE
     Indication: Encephalitis autoimmune
     Dosage: 0.3-0.5 MG/KG/DAY OVER 0.5-1 H
     Route: 042
  2. Immunoglobulin [Concomitant]
     Indication: Encephalitis autoimmune
     Dosage: 2 G/KG
     Route: 042

REACTIONS (1)
  - Therapy partial responder [Unknown]
